FAERS Safety Report 9676301 (Version 2)
Quarter: 2013Q4

REPORT INFORMATION
  Report Type: Spontaneous
  Country: US (occurrence: None)
  Receive Date: 20131106
  Receipt Date: 20131224
  Transmission Date: 20140711
  Serious: Yes (Death, Hospitalization)
  Sender: FDA-Public Use
  Company Number: UTC-039931

PATIENT
  Age: 79 Year
  Sex: Male
  Weight: 75.9 kg

DRUGS (4)
  1. REMODULIN [Suspect]
     Indication: COR PULMONALE CHRONIC
     Dosage: 97.92 UG/KG (0.068 UG/KG,L IN 1 MIN),SUBCUTANEOUS
     Route: 058
     Dates: start: 20120601
  2. REMODULIN [Suspect]
     Indication: RHEUMATOID ARTHRITIS
     Dosage: 97.92 UG/KG (0.068 UG/KG,L IN 1 MIN),SUBCUTANEOUS
     Route: 058
     Dates: start: 20120601
  3. ADCURCA (TADALAFIL) [Concomitant]
  4. WARFARIN [Suspect]

REACTIONS (2)
  - Diarrhoea [None]
  - Weight decreased [None]
